FAERS Safety Report 25463301 (Version 1)
Quarter: 2025Q2

REPORT INFORMATION
  Report Type: Report from Study
  Country: ES (occurrence: ES)
  Receive Date: 20250620
  Receipt Date: 20250620
  Transmission Date: 20250716
  Serious: Yes (Other)
  Sender: TEVA
  Company Number: ES-TEVA-VS-3339229

PATIENT
  Age: 80 Year
  Sex: Female

DRUGS (7)
  1. TERIPARATIDE [Suspect]
     Active Substance: TERIPARATIDE
     Indication: Osteoporosis
     Route: 065
     Dates: start: 20250508, end: 2025
  2. TORSEMIDE [Concomitant]
     Active Substance: TORSEMIDE
     Indication: Hypertension
     Dosage: START DATE: SOME TIME AGO; END DATE: CONTINUES
     Route: 065
  3. Lexatin [Concomitant]
     Indication: Anxiety
     Route: 065
  4. PREDNISONE [Concomitant]
     Active Substance: PREDNISONE
     Indication: Rheumatoid arthritis
     Dosage: DOSE:  ONE IN THE MORNING; START DATE: SOME TIME AGO, PREVIOUSLY HIGHER DOSES; ?END DATE: CONTINUES.
     Route: 065
  5. NEXIUM [Concomitant]
     Active Substance: ESOMEPRAZOLE MAGNESIUM
     Indication: Gastritis prophylaxis
     Dosage: DOSE: ONE IN THE MORNING; START DATE: SOME TIME AGO; END DATE: CONTINUES.
     Route: 065
  6. CORTICOSTEROID NOS [Concomitant]
     Active Substance: CORTICOSTEROID NOS
     Indication: Rheumatoid arthritis
     Route: 065
  7. CORTICOSTEROID NOS [Concomitant]
     Active Substance: CORTICOSTEROID NOS
     Indication: Rheumatoid arthritis
     Route: 065

REACTIONS (3)
  - Oral discomfort [Unknown]
  - Dry mouth [Not Recovered/Not Resolved]
  - Stomatitis [Unknown]

NARRATIVE: CASE EVENT DATE: 20250508
